FAERS Safety Report 6692521-6 (Version None)
Quarter: 2010Q2

REPORT INFORMATION
  Report Type: 
  Country: None (occurrence: None)
  Receive Date: 20100422
  Receipt Date: 20100413
  Transmission Date: 20101027
  Serious: Yes (Hospitalization)
  Sender: FDA-Public Use
  Company Number: B0648862A

PATIENT
  Sex: Male

DRUGS (7)
  1. KEPPRA [Suspect]
     Indication: DRUG USE FOR UNKNOWN INDICATION
     Route: 065
     Dates: start: 20100120
  2. LAMOTRIGINE [Suspect]
     Indication: DRUG USE FOR UNKNOWN INDICATION
     Route: 065
     Dates: start: 20070301, end: 20100216
  3. PREDNISOLONE [Concomitant]
     Dates: start: 20100107
  4. VIANI [Concomitant]
     Dosage: 2PUFF TWICE PER DAY
  5. DUOVENT [Concomitant]
  6. MUCOSOLVAN [Concomitant]
     Dosage: 3ML TWICE PER DAY
  7. TEBONIN [Concomitant]
     Dosage: 120MG TWICE PER DAY

REACTIONS (10)
  - ALTERED STATE OF CONSCIOUSNESS [None]
  - BRONCHOPNEUMONIA [None]
  - DIZZINESS [None]
  - DYSPNOEA [None]
  - HOT FLUSH [None]
  - HYPERTENSIVE CRISIS [None]
  - LISTLESS [None]
  - MUSCULOSKELETAL STIFFNESS [None]
  - NIGHT SWEATS [None]
  - STATUS EPILEPTICUS [None]
